FAERS Safety Report 13581454 (Version 1)
Quarter: 2017Q2

REPORT INFORMATION
  Report Type: Spontaneous
  Country: IT (occurrence: IT)
  Receive Date: 20170525
  Receipt Date: 20170525
  Transmission Date: 20170830
  Serious: Yes (Hospitalization)
  Sender: FDA-Public Use
  Company Number: IT-FRESENIUS KABI-FK201704384

PATIENT
  Age: 56 Year
  Sex: Female
  Weight: 82 kg

DRUGS (1)
  1. PACLITAXEL 6MG/ML CONCENTRATE FOR SOLUTION FOR INFUSION [Suspect]
     Active Substance: PACLITAXEL
     Indication: BREAST CANCER
     Route: 042
     Dates: start: 20170504, end: 20170504

REACTIONS (4)
  - Bladder sphincter atony [Recovered/Resolved]
  - Psychomotor hyperactivity [Recovered/Resolved]
  - Hyporesponsive to stimuli [Recovered/Resolved]
  - Hypotension [Recovered/Resolved]

NARRATIVE: CASE EVENT DATE: 20170504
